FAERS Safety Report 15114327 (Version 1)
Quarter: 2018Q3

REPORT INFORMATION
  Report Type: Report from Study
  Country: IE (occurrence: IE)
  Receive Date: 20180706
  Receipt Date: 20180706
  Transmission Date: 20181010
  Serious: Yes (Hospitalization, Other)
  Sender: FDA-Public Use
  Company Number: IE-SA-2017SA261627

PATIENT
  Age: 1 Month
  Sex: Female
  Weight: 3.7 kg

DRUGS (6)
  1. NOVORAPID [Suspect]
     Active Substance: INSULIN ASPART
     Indication: TYPE 1 DIABETES MELLITUS
     Dosage: 21 IU,QD
     Route: 058
     Dates: start: 20170311, end: 20171105
  2. INSULIN GLARGINE [Suspect]
     Active Substance: INSULIN GLARGINE
     Dosage: 24 IU, QD
     Route: 064
     Dates: end: 20171205
  3. NOVORAPID [Suspect]
     Active Substance: INSULIN ASPART
     Dosage: UNK
     Dates: start: 20171206
  4. INSULIN GLARGINE [Suspect]
     Active Substance: INSULIN GLARGINE
     Indication: TYPE 1 DIABETES MELLITUS
     Dosage: 12 IU,QD
     Route: 064
     Dates: start: 20170311, end: 20171105
  5. NOVORAPID [Suspect]
     Active Substance: INSULIN ASPART
     Dosage: 88 UNK
     Route: 064
     Dates: start: 20171205, end: 20171205
  6. INSULIN GLARGINE [Suspect]
     Active Substance: INSULIN GLARGINE
     Dosage: UNK
     Route: 063
     Dates: start: 20171206

REACTIONS (2)
  - Neonatal respiratory distress [Recovered/Resolved]
  - Foetal exposure during pregnancy [Unknown]

NARRATIVE: CASE EVENT DATE: 20171205
